FAERS Safety Report 4428634-9 (Version None)
Quarter: 2004Q3

REPORT INFORMATION
  Report Type: 
  Country: None (occurrence: None)
  Receive Date: 20040818
  Receipt Date: 20030721
  Transmission Date: 20050211
  Serious: No
  Sender: FDA-Public Use
  Company Number: US-BRISTOL-MYERS SQUIBB COMPANY-12331971

PATIENT
  Sex: Male

DRUGS (3)
  1. TEQUIN [Suspect]
  2. ALBUTEROL [Concomitant]
  3. ATROVENT [Concomitant]

REACTIONS (1)
  - HYPOTENSION [None]
